FAERS Safety Report 7463178-1 (Version None)
Quarter: 2011Q2

REPORT INFORMATION
  Report Type: 
  Country: None (occurrence: None)
  Receive Date: 20110506
  Receipt Date: 20110427
  Transmission Date: 20111010
  Serious: Yes (Other)
  Sender: FDA-Public Use
  Company Number: US-ROCHE-747981

PATIENT
  Sex: Male
  Weight: 59 kg

DRUGS (1)
  1. ACCUTANE [Suspect]
     Indication: ACNE
     Route: 065
     Dates: start: 19980501, end: 19990401

REACTIONS (7)
  - PERIRECTAL ABSCESS [None]
  - FISTULA [None]
  - INFLAMMATORY BOWEL DISEASE [None]
  - IRRITABLE BOWEL SYNDROME [None]
  - COLITIS ULCERATIVE [None]
  - ABDOMINAL PAIN [None]
  - RECTAL HAEMORRHAGE [None]
